FAERS Safety Report 24730821 (Version 2)
Quarter: 2025Q1

REPORT INFORMATION
  Report Type: Spontaneous
  Country: US (occurrence: US)
  Receive Date: 20241213
  Receipt Date: 20250212
  Transmission Date: 20250409
  Serious: Yes (Other)
  Sender: SANOFI AVENTIS
  Company Number: US-SA-2024SA367524

PATIENT
  Age: 19 Year
  Sex: Female

DRUGS (1)
  1. FABRAZYME [Suspect]
     Active Substance: AGALSIDASE BETA
     Indication: Fabry^s disease
     Dosage: 60 MG, QOW
     Route: 042
     Dates: start: 201807

REACTIONS (13)
  - Corneal opacity [Unknown]
  - Temperature intolerance [Unknown]
  - Exercise tolerance decreased [Unknown]
  - Brain fog [Unknown]
  - Anhidrosis [Unknown]
  - Gastrointestinal motility disorder [Unknown]
  - Tinnitus [Unknown]
  - Abdominal pain upper [Unknown]
  - Pyrexia [Unknown]
  - Nausea [Unknown]
  - Vomiting [Unknown]
  - Burning sensation [Unknown]
  - Therapeutic response shortened [Unknown]
